FAERS Safety Report 16139284 (Version 1)
Quarter: 2019Q2

REPORT INFORMATION
  Report Type: Report from Study
  Country: JP (occurrence: JP)
  Receive Date: 20190401
  Receipt Date: 20190401
  Transmission Date: 20190711
  Serious: Yes (Other)
  Sender: FDA-Public Use
  Company Number: JP-ROCHE-2012331

PATIENT
  Age: 55 Year

DRUGS (17)
  1. TEMODAL [Suspect]
     Active Substance: TEMOZOLOMIDE
     Dosage: DATE OF MOST RECENT DOSE: 04/APR/2017
     Route: 048
     Dates: start: 20170331
  2. TEMODAL [Suspect]
     Active Substance: TEMOZOLOMIDE
     Dosage: LAST RECEIVED: 07/FEB/2017
     Route: 048
     Dates: start: 20170203
  3. TEMODAL [Suspect]
     Active Substance: TEMOZOLOMIDE
     Dosage: LAST RECEIVED: 17/MAY/2017
     Route: 048
     Dates: start: 20170513
  4. TEMODAL [Suspect]
     Active Substance: TEMOZOLOMIDE
     Dosage: LAST RECEIVED: 01/NOV/2017.
     Route: 048
     Dates: start: 20171028
  5. BEVACIZUMAB. [Suspect]
     Active Substance: BEVACIZUMAB
     Indication: GLIOBLASTOMA
     Dosage: LAST RECEIVED: 04/JAN/2017
     Route: 041
     Dates: start: 20161207
  6. BEVACIZUMAB. [Suspect]
     Active Substance: BEVACIZUMAB
     Dosage: LAST RECEIVED: 05/JAN/2018
     Route: 041
     Dates: start: 20180105
  7. TEMODAL [Suspect]
     Active Substance: TEMOZOLOMIDE
     Dosage: LAST RECEIVED: 09/AUG/2017
     Route: 048
     Dates: start: 20170805
  8. TEMODAL [Suspect]
     Active Substance: TEMOZOLOMIDE
     Dosage: LAST RECEIVED: 04/OCT/2017
     Route: 048
     Dates: start: 20170930
  9. TEMODAL [Suspect]
     Active Substance: TEMOZOLOMIDE
     Dosage: LAST RECEIVED: 29/NOV/2017
     Route: 048
     Dates: start: 20171125
  10. BEVACIZUMAB. [Suspect]
     Active Substance: BEVACIZUMAB
     Dosage: LAST RECEIVED: 07/NOV/2018
     Route: 041
     Dates: start: 20180119
  11. TEMODAL [Suspect]
     Active Substance: TEMOZOLOMIDE
     Indication: GLIOBLASTOMA
     Dosage: LAST RECEIVED: 03/JAN/2017.
     Route: 048
     Dates: start: 20161116
  12. BEVACIZUMAB. [Suspect]
     Active Substance: BEVACIZUMAB
     Dosage: LAST RECEIVED: 20/DEC/2017
     Route: 041
     Dates: start: 20170203
  13. TEMODAL [Suspect]
     Active Substance: TEMOZOLOMIDE
     Dosage: LAST RECEIVED: 07/MAR/2017
     Route: 048
     Dates: start: 20170303
  14. TEMODAL [Suspect]
     Active Substance: TEMOZOLOMIDE
     Dosage: LAST RECEIVED: 12/JUL/2017.
     Route: 048
     Dates: start: 20170708
  15. TEMODAL [Suspect]
     Active Substance: TEMOZOLOMIDE
     Dosage: LAST RECEIVED: 06/SEP/2017
     Route: 048
     Dates: start: 20170902
  16. TEMODAL [Suspect]
     Active Substance: TEMOZOLOMIDE
     Dosage: LAST RECEIVED: 14/JUN/2017
     Route: 048
     Dates: start: 20170610
  17. TEMODAL [Suspect]
     Active Substance: TEMOZOLOMIDE
     Dosage: LAST RECEIVED: 27/DEC/2017
     Route: 048
     Dates: start: 20171223

REACTIONS (2)
  - Lymphocyte count decreased [Recovered/Resolved]
  - Hypertension [Recovering/Resolving]

NARRATIVE: CASE EVENT DATE: 20170203
